FAERS Safety Report 4613892-8 (Version None)
Quarter: 2005Q1

REPORT INFORMATION
  Report Type: 
  Country: None (occurrence: None)
  Receive Date: 20050321
  Receipt Date: 20050314
  Transmission Date: 20050727
  Serious: Yes (Hospitalization, Other)
  Sender: FDA-Public Use
  Company Number: PHEH2005US03162

PATIENT
  Age: 62 Year
  Sex: Female

DRUGS (4)
  1. TRILEPTAL [Suspect]
     Indication: GRAND MAL CONVULSION
     Dosage: 900 MG, QD
     Route: 048
     Dates: start: 20010101
  2. SYNTHROID [Concomitant]
     Indication: THYROID DISORDER
     Dosage: 50 UG, UNK
  3. CLONIDINE [Concomitant]
     Indication: HYPERTENSION
     Dosage: UNK, UNK
  4. HYDROCHLOROTHIAZIDE [Concomitant]
     Indication: OEDEMA
     Dosage: 25 MG, UNK
     Dates: start: 20040101

REACTIONS (15)
  - ANORECTAL DISORDER [None]
  - ARTHRALGIA [None]
  - BLADDER DISORDER [None]
  - BLOOD SODIUM DECREASED [None]
  - DIFFICULTY IN WALKING [None]
  - DYSPNOEA [None]
  - GRIP STRENGTH DECREASED [None]
  - HYPERTENSION [None]
  - HYPONATRAEMIA [None]
  - INCREASED UPPER AIRWAY SECRETION [None]
  - JOINT SWELLING [None]
  - MEMORY IMPAIRMENT [None]
  - MYALGIA [None]
  - OEDEMA PERIPHERAL [None]
  - SURGERY [None]
